FAERS Safety Report 21954254 (Version 1)
Quarter: 2023Q1

REPORT INFORMATION
  Report Type: Report from Study
  Country: US (occurrence: US)
  Receive Date: 20230204
  Receipt Date: 20230204
  Transmission Date: 20230417
  Serious: No
  Sender: FDA-Public Use
  Company Number: US-ACORDA-ACO_172093_2022

PATIENT
  Sex: Male

DRUGS (15)
  1. AMPYRA [Suspect]
     Active Substance: DALFAMPRIDINE
     Indication: Multiple sclerosis
     Dosage: 1 DOSAGE FORM, BID (12 HOURS APART) WITH OR WITHOUT FOOD AS DIRECTED
     Route: 048
     Dates: start: 20161206
  2. DALFAMPRIDINE [Suspect]
     Active Substance: DALFAMPRIDINE
     Indication: Product used for unknown indication
     Dosage: UNKNOWN
     Route: 065
  3. AMANTADINE [Concomitant]
     Active Substance: AMANTADINE
     Indication: Product used for unknown indication
     Dosage: 100 MILLIGRAM
     Route: 065
  4. BACLOFEN [Concomitant]
     Active Substance: BACLOFEN
     Indication: Product used for unknown indication
     Dosage: UNK
     Route: 065
  5. CIALIS [Concomitant]
     Active Substance: TADALAFIL
     Indication: Neurogenic bladder
     Dosage: 5 MILLIGRAM
     Route: 065
  6. CITALOPRAM [Concomitant]
     Active Substance: CITALOPRAM HYDROBROMIDE
     Indication: Anxiety
     Dosage: 20 MILLIGRAM
     Route: 065
  7. CITALOPRAM [Concomitant]
     Active Substance: CITALOPRAM HYDROBROMIDE
     Dosage: 40 MILLIGRAM, QD
     Route: 065
  8. TAMSULOSIN [Concomitant]
     Active Substance: TAMSULOSIN
     Indication: Product used for unknown indication
     Dosage: 0.4 MILLIGRAM
     Route: 065
  9. TRAZODONE [Concomitant]
     Active Substance: TRAZODONE HYDROCHLORIDE
     Indication: Product used for unknown indication
     Dosage: 50 MILLIGRAM
     Route: 065
  10. OCREVUS [Concomitant]
     Active Substance: OCRELIZUMAB
     Indication: Product used for unknown indication
     Dosage: UNKNOWN
     Route: 065
     Dates: start: 201711
  11. FLOMAX [Concomitant]
     Active Substance: TAMSULOSIN HYDROCHLORIDE
     Indication: Neurogenic bladder
     Dosage: UNKNOWN
     Route: 065
  12. FINASTERIDE [Concomitant]
     Active Substance: FINASTERIDE
     Indication: Neurogenic bladder
     Dosage: UNKNOWN
     Route: 065
  13. HYDROXYZINE [Concomitant]
     Active Substance: HYDROXYZINE HYDROCHLORIDE
     Indication: Anxiety
     Dosage: 25 MILLIGRAM, BID, PRN
     Route: 065
  14. PROVIGIL [Concomitant]
     Active Substance: MODAFINIL
     Indication: Fatigue
     Dosage: 100 MILLIGRAM, QAM
     Route: 065
  15. GABAPENTIN [Concomitant]
     Active Substance: GABAPENTIN
     Indication: Product used for unknown indication
     Dosage: UNKNOWN
     Route: 065

REACTIONS (31)
  - Mobility decreased [Not Recovered/Not Resolved]
  - Condition aggravated [Unknown]
  - Dry skin [Unknown]
  - Skin exfoliation [Unknown]
  - Feeling abnormal [Unknown]
  - Muscle spasticity [Unknown]
  - Condition aggravated [Unknown]
  - Sleep disorder [Unknown]
  - Vision blurred [Unknown]
  - Dysphagia [Unknown]
  - Hypoaesthesia [Unknown]
  - Pain [Unknown]
  - Fall [Not Recovered/Not Resolved]
  - Muscle spasms [Unknown]
  - Dyskinesia [Unknown]
  - Musculoskeletal stiffness [Unknown]
  - Bladder disorder [Unknown]
  - Abdominal discomfort [Unknown]
  - Sexual dysfunction [Unknown]
  - Depression [Unknown]
  - Temperature intolerance [Unknown]
  - Skin disorder [Unknown]
  - Oedema peripheral [Unknown]
  - Peroneal nerve palsy [Unknown]
  - Anxiety [Unknown]
  - Gait disturbance [Unknown]
  - Gait disturbance [Unknown]
  - Fatigue [Unknown]
  - Asthenia [Unknown]
  - Dizziness [Unknown]
  - Paraesthesia [Unknown]
